FAERS Safety Report 9159533 (Version 2)
Quarter: 2013Q4

REPORT INFORMATION
  Report Type: Spontaneous
  Country: US (occurrence: None)
  Receive Date: 20130212
  Receipt Date: 20131129
  Transmission Date: 20140711
  Serious: Yes (Other)
  Sender: FDA-Public Use
  Company Number: AUR-APL-2013-01283

PATIENT
  Age: 42 Year
  Sex: Male

DRUGS (2)
  1. QUETIAPINE [Suspect]
     Indication: SCHIZOPHRENIA
     Dosage: 400 MG AT BED TIME, ORAL?-STOPPED
     Route: 048
  2. QUETIAPINE [Suspect]
     Indication: DELIRIUM
     Dosage: 400 MG AT BED TIME, ORAL?-STOPPED
     Route: 048

REACTIONS (7)
  - Diarrhoea [None]
  - Mental status changes [None]
  - Electrocardiogram QT prolonged [None]
  - Sepsis [None]
  - Renal failure [None]
  - Adrenal insufficiency [None]
  - Acute respiratory distress syndrome [None]
